FAERS Safety Report 18834924 (Version 1)
Quarter: 2021Q1

REPORT INFORMATION
  Report Type: Spontaneous
  Country: JP (occurrence: JP)
  Receive Date: 20210203
  Receipt Date: 20210203
  Transmission Date: 20210419
  Serious: Yes (Other)
  Sender: FDA-Public Use
  Company Number: JP-SUN PHARMACEUTICAL INDUSTRIES LTD-2021R1-278601

PATIENT
  Sex: Male
  Weight: 3.5 kg

DRUGS (2)
  1. EBASTINE [Suspect]
     Active Substance: EBASTINE
     Indication: PRURITUS
     Dosage: 10 MILLIGRAM, DAILY
     Route: 064
  2. ASPIRIN. [Suspect]
     Active Substance: ASPIRIN
     Indication: PRODUCT USED FOR UNKNOWN INDICATION
     Dosage: UNK (. LOW DOSE (81 MG) )
     Route: 064

REACTIONS (3)
  - Foetal exposure during pregnancy [Unknown]
  - Skin disorder [Unknown]
  - Aortic aneurysm [Unknown]
